FAERS Safety Report 16534330 (Version 1)
Quarter: 2019Q3

REPORT INFORMATION
  Report Type: Spontaneous
  Country: US (occurrence: US)
  Receive Date: 20190705
  Receipt Date: 20190705
  Transmission Date: 20191004
  Serious: Yes (Other)
  Sender: FDA-Public Use
  Company Number: US-GLAXOSMITHKLINE-US2019119469

PATIENT
  Age: 61 Year
  Sex: Male

DRUGS (5)
  1. PRIMATENE [Concomitant]
     Active Substance: EPHEDRINE HYDROCHLORIDE\GUAIFENESIN
     Indication: CHEST DISCOMFORT
     Dosage: UNK
     Route: 065
     Dates: start: 201906
  2. NUCALA [Suspect]
     Active Substance: MEPOLIZUMAB
     Indication: ASTHMA
     Dosage: UNK
     Route: 042
     Dates: start: 20190619
  3. OXYGEN. [Concomitant]
     Active Substance: OXYGEN
     Indication: PRODUCT USED FOR UNKNOWN INDICATION
     Dosage: UNK
     Route: 065
     Dates: start: 201906
  4. ERYTHROMYCIN. [Concomitant]
     Active Substance: ERYTHROMYCIN
     Indication: SINUSITIS
     Dosage: UNK
     Route: 065
     Dates: start: 20190625
  5. PREDNISONE. [Concomitant]
     Active Substance: PREDNISONE
     Indication: SINUSITIS
     Dosage: 10 MG, UNK
     Route: 065
     Dates: start: 20190625

REACTIONS (9)
  - Condition aggravated [Recovering/Resolving]
  - Oxygen saturation decreased [Recovering/Resolving]
  - Pulmonary oedema [Recovering/Resolving]
  - Chest discomfort [Recovering/Resolving]
  - Rhinorrhoea [Recovering/Resolving]
  - Sleep disorder due to a general medical condition [Recovering/Resolving]
  - Choking [Recovering/Resolving]
  - Feeling abnormal [Recovering/Resolving]
  - Wheezing [Not Recovered/Not Resolved]

NARRATIVE: CASE EVENT DATE: 201906
